FAERS Safety Report 5193832-6 (Version None)
Quarter: 2006Q4

REPORT INFORMATION
  Report Type: 
  Country: None (occurrence: None)
  Receive Date: 20061228
  Receipt Date: 20061219
  Transmission Date: 20070319
  Serious: Yes (Other)
  Sender: FDA-Public Use
  Company Number: US-AVENTIS-200620220US

PATIENT
  Sex: Female

DRUGS (5)
  1. AMARYL [Suspect]
     Dosage: DOSE: UNK
  2. BYETTA [Suspect]
     Route: 058
     Dates: start: 20050601, end: 20050701
  3. BYETTA [Suspect]
     Route: 058
     Dates: start: 20050701
  4. LANTUS [Concomitant]
     Dosage: DOSE: UNK
  5. GLUCOPHAGE [Concomitant]
     Dosage: DOSE: UNK

REACTIONS (6)
  - DECREASED APPETITE [None]
  - DRUG INEFFECTIVE [None]
  - GLYCOSYLATED HAEMOGLOBIN INCREASED [None]
  - HYPOGLYCAEMIA [None]
  - MALAISE [None]
  - WEIGHT DECREASED [None]
